FAERS Safety Report 17692170 (Version 1)
Quarter: 2020Q2

REPORT INFORMATION
  Report Type: Spontaneous
  Country: US (occurrence: US)
  Receive Date: 20200422
  Receipt Date: 20200422
  Transmission Date: 20200714
  Serious: No
  Sender: FDA-Public Use
  Company Number: US-PFIZER INC-2020156286

PATIENT
  Age: 84 Year
  Sex: Female
  Weight: 61.69 kg

DRUGS (1)
  1. METOPROLOL TARTRATE. [Suspect]
     Active Substance: METOPROLOL TARTRATE
     Dosage: UNK
     Dates: start: 202001

REACTIONS (4)
  - Fatigue [Unknown]
  - Limb discomfort [Unknown]
  - Palpitations [Unknown]
  - Headache [Unknown]
